FAERS Safety Report 5856247-0 (Version None)
Quarter: 2008Q3

REPORT INFORMATION
  Report Type: 
  Country: None (occurrence: None)
  Receive Date: 20080825
  Receipt Date: 20080821
  Transmission Date: 20090109
  Serious: Yes (Hospitalization)
  Sender: FDA-Public Use
  Company Number: A0744157A

PATIENT
  Age: 63 Year
  Sex: Female
  Weight: 86.8 kg

DRUGS (6)
  1. AVANDIA [Suspect]
     Indication: DIABETES MELLITUS
     Route: 048
     Dates: start: 20000101, end: 20070501
  2. METFORMIN [Concomitant]
     Dates: start: 20030726, end: 20040801
  3. GLUCOTROL XL [Concomitant]
     Dates: start: 20030113, end: 20030301
  4. CAPTOPRIL [Concomitant]
  5. CLONAZEPAM [Concomitant]
  6. PERCOCET [Concomitant]

REACTIONS (1)
  - MYOCARDIAL INFARCTION [None]
